FAERS Safety Report 6940391-0 (Version None)
Quarter: 2010Q3

REPORT INFORMATION
  Report Type: 
  Country: None (occurrence: None)
  Receive Date: 20100820
  Receipt Date: 20081203
  Transmission Date: 20110219
  Serious: Yes (Hospitalization)
  Sender: FDA-Public Use
  Company Number: 2008-187930-NL

PATIENT
  Age: 42 Year
  Sex: Female
  Weight: 70.3 kg

DRUGS (4)
  1. NUVARING [Suspect]
     Indication: PRODUCT USED FOR UNKNOWN INDICATION
     Dates: start: 20060701, end: 20061201
  2. AVELOX [Concomitant]
  3. PREDNISOLONE [Concomitant]
  4. BIAXIN [Concomitant]

REACTIONS (17)
  - CEREBRAL INFARCTION [None]
  - CEREBROVASCULAR ACCIDENT [None]
  - CONVULSION [None]
  - EXCORIATION [None]
  - GRAND MAL CONVULSION [None]
  - HAEMORRHAGE [None]
  - INTRACRANIAL VENOUS SINUS THROMBOSIS [None]
  - JUGULAR VEIN THROMBOSIS [None]
  - LOSS OF CONSCIOUSNESS [None]
  - MENORRHAGIA [None]
  - MIGRAINE [None]
  - MOUTH INJURY [None]
  - MYOFASCIAL PAIN SYNDROME [None]
  - NASAL OEDEMA [None]
  - SINUSITIS [None]
  - SYNOVITIS [None]
  - TRANSVERSE SINUS THROMBOSIS [None]
